FAERS Safety Report 12797546 (Version 8)
Quarter: 2017Q3

REPORT INFORMATION
  Report Type: Report from Study
  Country: CA (occurrence: CA)
  Receive Date: 20160930
  Receipt Date: 20170716
  Transmission Date: 20171127
  Serious: Yes (Other)
  Sender: FDA-Public Use
  Company Number: PHHY2014CA016746

PATIENT
  Age: 49 Year
  Sex: Female

DRUGS (4)
  1. SANDOSTATIN LAR DEPOT [Suspect]
     Active Substance: OCTREOTIDE ACETATE
     Dosage: 20 MG, QMO (EVERY 04 WEEKS)
     Route: 030
     Dates: start: 20170413, end: 20170606
  2. SANDOSTATIN [Suspect]
     Active Substance: OCTREOTIDE ACETATE
     Indication: ACROMEGALY
     Dosage: UNK UNK, ONCE/SINGLE
     Route: 058
     Dates: start: 20131210, end: 20131210
  3. SANDOSTATIN LAR DEPOT [Suspect]
     Active Substance: OCTREOTIDE ACETATE
     Indication: ACROMEGALY
     Dosage: 20 MG, QMO (EVERY 04 WEEKS)
     Route: 030
     Dates: start: 20131213, end: 20160107
  4. SANDOSTATIN LAR DEPOT [Suspect]
     Active Substance: OCTREOTIDE ACETATE
     Dosage: 20 MG, TIW (EVERY 3 WEEKS)
     Route: 030
     Dates: start: 20160124, end: 20170314

REACTIONS (13)
  - Eructation [Recovering/Resolving]
  - Abdominal distension [Unknown]
  - Decreased appetite [Unknown]
  - Drug ineffective [Unknown]
  - Dyspepsia [Recovering/Resolving]
  - Ovarian cyst [Unknown]
  - Sinusitis [Recovering/Resolving]
  - Needle issue [Unknown]
  - Abdominal discomfort [Unknown]
  - Urinary tract infection [Unknown]
  - Blood pressure systolic increased [Unknown]
  - Fatigue [Unknown]
  - Inappropriate schedule of drug administration [Unknown]

NARRATIVE: CASE EVENT DATE: 20150204
